FAERS Safety Report 24866425 (Version 1)
Quarter: 2025Q1

REPORT INFORMATION
  Report Type: Spontaneous
  Country: US (occurrence: US)
  Receive Date: 20250121
  Receipt Date: 20250121
  Transmission Date: 20250409
  Serious: No
  Sender: CURRAX PHARMACEUTICALS
  Company Number: US-CURRAX PHARMACEUTICALS LLC-US-2022CUR024205

PATIENT
  Age: 35 Year
  Sex: Female

DRUGS (2)
  1. CONTRAVE [Suspect]
     Active Substance: BUPROPION HYDROCHLORIDE\NALTREXONE HYDROCHLORIDE
     Indication: Product used for unknown indication
     Dosage: STRENGTH 8/90 MG, ONE TABLET DAILY
     Route: 048
     Dates: start: 20221213, end: 20221219
  2. CONTRAVE [Suspect]
     Active Substance: BUPROPION HYDROCHLORIDE\NALTREXONE HYDROCHLORIDE
     Dosage: STRENGTH 8/90 MG, ONE TABLET TWICE DAILY
     Route: 048
     Dates: start: 20221220, end: 20221220

REACTIONS (3)
  - Pain [Not Recovered/Not Resolved]
  - Movement disorder [Not Recovered/Not Resolved]
  - Chills [Not Recovered/Not Resolved]

NARRATIVE: CASE EVENT DATE: 20221201
